FAERS Safety Report 9191584 (Version 1)
Quarter: 2013Q1

REPORT INFORMATION
  Report Type: Report from Study
  Country: US (occurrence: US)
  Receive Date: 20130326
  Receipt Date: 20130326
  Transmission Date: 20140127
  Serious: Yes (Death)
  Sender: FDA-Public Use
  Company Number: US-ACTELION-A-US2013-81009

PATIENT
  Age: 60 Year
  Sex: Female

DRUGS (1)
  1. TRACLEER [Suspect]
     Indication: SCLERODERMA
     Dosage: UNK
     Route: 048
     Dates: start: 20040916, end: 20130314

REACTIONS (3)
  - Scleroderma [Fatal]
  - Disease progression [Fatal]
  - Multi-organ failure [Fatal]
